FAERS Safety Report 9647384 (Version 3)
Quarter: 2013Q4

REPORT INFORMATION
  Report Type: Report from Study
  Country: US (occurrence: US)
  Receive Date: 20131028
  Receipt Date: 20131112
  Transmission Date: 20140711
  Serious: Yes (Hospitalization)
  Sender: FDA-Public Use
  Company Number: US-PFIZER INC-2013262825

PATIENT
  Age: 59 Year
  Sex: Female
  Weight: 77 kg

DRUGS (11)
  1. INOTUZUMAB OZOGAMICIN [Suspect]
     Indication: ACUTE LYMPHOCYTIC LEUKAEMIA
     Dosage: 0.8 MG/M2, CYCLIC (3 WEEKLY DOSES IN 28 DAY CYCLES)
     Route: 042
     Dates: start: 20130423, end: 20130813
  2. INOTUZUMAB OZOGAMICIN [Suspect]
     Dosage: 0.4 MG/M2, CYCLIC (3 WEEKLY DOSES IN 28 DAY CYCLES)
     Route: 042
     Dates: start: 20130423, end: 20130813
  3. OXYCODONE [Concomitant]
     Indication: PAIN
     Dosage: 5 MG, EVERY 4 HRS
     Route: 048
     Dates: start: 20130830
  4. ACYCLOVIR [Concomitant]
     Indication: INFECTION PROPHYLAXIS
     Dosage: 800 MG, 2X/DAY
     Route: 048
     Dates: start: 201201
  5. CALCIUM/ VIT D [Concomitant]
     Indication: ROUTINE HEALTH MAINTENANCE
     Dosage: 1 DF(CALCIUM 315 MG /VITAMIN D 200 IU), 2X/DAY
     Route: 048
     Dates: start: 2012
  6. COLECALCIFEROL [Concomitant]
     Indication: ROUTINE HEALTH MAINTENANCE
     Dosage: 1000 IU, DAILY
     Route: 048
     Dates: start: 20130604
  7. GABAPENTIN [Concomitant]
     Indication: NEUROPATHY PERIPHERAL
     Dosage: 300 MG, 2X/DAY
     Route: 048
     Dates: start: 2012
  8. LEVOFLOXACIN [Concomitant]
     Indication: INFECTION PROPHYLAXIS
     Dosage: 750 MG, DAILY
     Route: 048
     Dates: start: 20130507
  9. LIDOCAINE [Concomitant]
     Indication: PAIN IN EXTREMITY
     Dosage: 5 %, DAILY
     Route: 062
  10. NEOMYCIN [Concomitant]
     Indication: AMMONIA INCREASED
     Dosage: 500 MG, DAILY
     Route: 048
     Dates: start: 20130831
  11. BACTRIM [Concomitant]
     Indication: INFECTION PROPHYLAXIS
     Dosage: 1 DF (SULFAMETHOXAZEOL 800/TRIMETHOPRIM 160MG), 2X/WEEK
     Route: 048
     Dates: start: 201201

REACTIONS (4)
  - Transaminases increased [Unknown]
  - Mental status changes [Recovered/Resolved]
  - Urinary tract infection [Recovered/Resolved]
  - Dehydration [Recovered/Resolved]
